FAERS Safety Report 7460579-2 (Version None)
Quarter: 2011Q2

REPORT INFORMATION
  Report Type: 
  Country: None (occurrence: None)
  Receive Date: 20110419
  Receipt Date: 20110407
  Transmission Date: 20111010
  Serious: Yes (Other)
  Sender: FDA-Public Use
  Company Number: AEUSA201100083

PATIENT
  Age: 61 Year
  Sex: Male

DRUGS (5)
  1. GAMUNEX [Suspect]
     Indication: CHRONIC INFLAMMATORY DEMYELINATING POLYRADICULONEUROPATHY
     Dosage: 175 MG, QM, IV
     Route: 042
     Dates: start: 20100628, end: 20100903
  2. GAMUNEX [Suspect]
  3. GAMUNEX [Suspect]
  4. GAMUNEX [Suspect]
  5. GAMUNEX [Suspect]

REACTIONS (3)
  - HEADACHE [None]
  - RASH MACULO-PAPULAR [None]
  - DEEP VEIN THROMBOSIS [None]
